FAERS Safety Report 8576074 (Version 3)
Quarter: 2012Q4

REPORT INFORMATION
  Report Type: 
  Country: US (occurrence: US)
  Receive Date: 20120523
  Receipt Date: 20121203
  Transmission Date: 20130627
  Serious: Yes (Other)
  Sender: FDA-Public Use
  Company Number: US-ROCHE-1071312

PATIENT
  Age: 46 Year
  Sex: Female
  Weight: 81.72 kg

DRUGS (6)
  1. XOLAIR [Suspect]
     Indication: ASTHMA
     Route: 058
     Dates: start: 20120329, end: 20120419
  2. ALVESCO [Concomitant]
     Indication: ASTHMA
     Route: 065
  3. ALBUTEROL [Concomitant]
     Indication: ASTHMA
     Route: 065
  4. SYNTHROID [Concomitant]
  5. ESTRADIOL [Concomitant]
  6. LOVASTATIN [Concomitant]

REACTIONS (3)
  - Arthralgia [Recovered/Resolved]
  - Malaise [Recovered/Resolved]
  - Asthma [Unknown]
